FAERS Safety Report 4759595-0 (Version None)
Quarter: 2005Q3

REPORT INFORMATION
  Report Type: 
  Country: None (occurrence: None)
  Receive Date: 20050831
  Receipt Date: 20050816
  Transmission Date: 20060218
  Serious: Yes (Hospitalization)
  Sender: FDA-Public Use
  Company Number: S04-USA-06025-02

PATIENT
  Sex: Male
  Weight: 0.7348 kg

DRUGS (6)
  1. LEXAPRO [Suspect]
     Indication: DEPRESSION
     Dosage: 20 MG QD TRANSPLACENTAL
     Route: 064
     Dates: start: 20040101, end: 20040826
  2. LEXAPRO [Suspect]
     Indication: OBSESSIVE-COMPULSIVE DISORDER
     Dosage: 20 MG QD TRANSPLACENTAL
     Route: 064
     Dates: start: 20040101, end: 20040826
  3. PRENATAL VITAMINS [Concomitant]
  4. ALBUTEROL [Concomitant]
  5. PITOCIN [Concomitant]
  6. FENTANYL EPIDURAL [Concomitant]

REACTIONS (9)
  - APGAR SCORE LOW [None]
  - DRUG EXPOSURE DURING PREGNANCY [None]
  - EXOMPHALOS [None]
  - FOETAL GROWTH RETARDATION [None]
  - FOETAL MOVEMENTS DECREASED [None]
  - NEONATAL DISORDER [None]
  - PREMATURE BABY [None]
  - SMALL FOR DATES BABY [None]
  - UMBILICAL CORD AROUND NECK [None]
